FAERS Safety Report 6067897-3 (Version None)
Quarter: 2009Q1

REPORT INFORMATION
  Report Type: 
  Country: None (occurrence: None)
  Receive Date: 20090203
  Receipt Date: 20081031
  Transmission Date: 20090719
  Serious: Yes (Death, Life-Threatening, Other)
  Sender: FDA-Public Use
  Company Number: 2009PL000014

PATIENT
  Sex: Male

DRUGS (8)
  1. AZATHIOPRINE [Suspect]
     Indication: HEART TRANSPLANT
     Dosage: 50 MG; QD;
  2. ATGAM [Concomitant]
  3. CYCLOSPORINE [Concomitant]
  4. PREDNISONE [Concomitant]
  5. VINCRISTINE [Concomitant]
  6. RITUXIMAB-CHOP-14 [Concomitant]
  7. GEMCITABINE [Concomitant]
  8. OXALIPLATINUM [Concomitant]

REACTIONS (7)
  - EPSTEIN-BARR VIRUS TEST POSITIVE [None]
  - MUCOSAL INFLAMMATION [None]
  - NON-HODGKIN'S LYMPHOMA STAGE IV [None]
  - ORAL HERPES [None]
  - PANCYTOPENIA [None]
  - POLYNEUROPATHY [None]
  - SEPSIS [None]
